FAERS Safety Report 13887058 (Version 1)
Quarter: 2017Q3

REPORT INFORMATION
  Report Type: Spontaneous
  Country: US (occurrence: US)
  Receive Date: 20170821
  Receipt Date: 20170821
  Transmission Date: 20171127
  Serious: Yes (Other)
  Sender: FDA-Public Use
  Company Number: US-BAYER-2017-152902

PATIENT
  Age: 86 Year
  Sex: Female
  Weight: 61 kg

DRUGS (4)
  1. CITRACAL PETITES [Suspect]
     Active Substance: CALCIUM CITRATE
     Dosage: UNK
     Route: 048
     Dates: start: 20170805, end: 20170808
  2. METOPROLOL. [Concomitant]
     Active Substance: METOPROLOL
     Dosage: UNK
  3. SYNTHROID [Concomitant]
     Active Substance: LEVOTHYROXINE SODIUM
  4. BAYER ASPIRIN [Suspect]
     Active Substance: ASPIRIN
     Dosage: UNK

REACTIONS (5)
  - Odynophagia [Recovered/Resolved]
  - Choking [Recovered/Resolved]
  - Product use complaint [None]
  - Unevaluable event [None]
  - Diarrhoea [Recovered/Resolved]

NARRATIVE: CASE EVENT DATE: 20170808
